FAERS Safety Report 10855997 (Version 1)
Quarter: 2015Q1

REPORT INFORMATION
  Report Type: Spontaneous
  Country: AT (occurrence: AT)
  Receive Date: 20150223
  Receipt Date: 20150223
  Transmission Date: 20150721
  Serious: Yes (Death)
  Sender: FDA-Public Use
  Company Number: AT-SA-2015SA020033

PATIENT
  Age: 60 Year
  Sex: Female

DRUGS (8)
  1. LOVENOX [Suspect]
     Active Substance: ENOXAPARIN SODIUM
     Indication: THROMBOSIS PROPHYLAXIS
     Route: 058
     Dates: start: 201502
  2. NITROGLYCERINE [Concomitant]
     Active Substance: NITROGLYCERIN
  3. TRADJENTA [Concomitant]
     Active Substance: LINAGLIPTIN
  4. PANTOLOC [Concomitant]
     Active Substance: PANTOPRAZOLE SODIUM
  5. LIPCOR [Concomitant]
     Active Substance: FENOFIBRATE
  6. MEXALEN [Concomitant]
     Active Substance: LUBIPROSTONE
  7. AMELIOR PLUS HCT [Concomitant]
  8. NOVALGIN [Concomitant]
     Active Substance: METAMIZOLE SODIUM

REACTIONS (1)
  - Pulmonary embolism [Fatal]

NARRATIVE: CASE EVENT DATE: 20150216
